FAERS Safety Report 12828442 (Version 1)
Quarter: 2016Q4

REPORT INFORMATION
  Report Type: Spontaneous
  Country: CH (occurrence: CH)
  Receive Date: 20161007
  Receipt Date: 20161007
  Transmission Date: 20170207
  Serious: Yes (Hospitalization)
  Sender: FDA-Public Use
  Company Number: CH-BAYER-2016-192770

PATIENT
  Age: 87 Year
  Sex: Female

DRUGS (3)
  1. ASPIRIN CARDIO [Suspect]
     Active Substance: ASPIRIN
     Dosage: UNK
     Route: 048
  2. BECOZYM [Concomitant]
     Active Substance: VITAMINS
     Dosage: UNK
  3. SERESTA [Suspect]
     Active Substance: OXAZEPAM
     Dosage: 10.25 MG, QD
     Route: 048

REACTIONS (1)
  - Fall [Recovering/Resolving]

NARRATIVE: CASE EVENT DATE: 20160919
